FAERS Safety Report 8481495-3 (Version None)
Quarter: 2012Q3

REPORT INFORMATION
  Report Type: 
  Country: None (occurrence: None)
  Receive Date: 20120702
  Receipt Date: 20120613
  Transmission Date: 20120928
  Serious: No
  Sender: FDA-Public Use
  Company Number: JP-US-EMD SERONO, INC.-7134230

PATIENT
  Sex: Female
  Weight: 54 kg

DRUGS (4)
  1. GONAL-F [Suspect]
     Indication: INFERTILITY
     Route: 058
     Dates: start: 20120512, end: 20120516
  2. GONAL-F [Suspect]
     Indication: OVULATION INDUCTION
  3. GANIREST [Concomitant]
     Indication: PRODUCT USED FOR UNKNOWN INDICATION
     Dates: start: 20120518
  4. HMG [Concomitant]
     Indication: PRODUCT USED FOR UNKNOWN INDICATION
     Dates: start: 20120518

REACTIONS (1)
  - RASH GENERALISED [None]
